FAERS Safety Report 5656645-4 (Version None)
Quarter: 2008Q1

REPORT INFORMATION
  Report Type: 
  Country: None (occurrence: None)
  Receive Date: 20080310
  Receipt Date: 20080204
  Transmission Date: 20080703
  Serious: No
  Sender: FDA-Public Use
  Company Number: US-BAYER-200813499NA

PATIENT
  Age: 42 Year
  Sex: Female
  Weight: 60 kg

DRUGS (1)
  1. ULTRAVIST 370 [Suspect]
     Indication: COMPUTERISED TOMOGRAM
     Route: 042
     Dates: start: 20080131, end: 20080131

REACTIONS (2)
  - EYE PRURITUS [None]
  - URTICARIA [None]
